FAERS Safety Report 25677402 (Version 4)
Quarter: 2025Q3

REPORT INFORMATION
  Report Type: Spontaneous
  Country: EU (occurrence: EU)
  Receive Date: 20250813
  Receipt Date: 20250919
  Transmission Date: 20251020
  Serious: Yes (Hospitalization, Other)
  Sender: ALEXION PHARMACEUTICALS
  Company Number: None

PATIENT
  Age: 34 Year
  Sex: Male
  Weight: 62 kg

DRUGS (26)
  1. NEXIUM [Suspect]
     Active Substance: ESOMEPRAZOLE MAGNESIUM
     Indication: Product used for unknown indication
     Route: 065
  2. COLISTIMETHATE SODIUM [Suspect]
     Active Substance: COLISTIMETHATE SODIUM
     Indication: Prophylaxis against transplant rejection
     Route: 065
  3. AZITHROMYCIN [Interacting]
     Active Substance: AZITHROMYCIN
     Indication: Bronchiolitis
     Dosage: 250 MG/DAY
     Route: 065
  4. COTRIMOXAZOLE [Suspect]
     Active Substance: SULFAMETHOXAZOLE\TRIMETHOPRIM
     Indication: Product used for unknown indication
     Dosage: 400/80MG TABLETS 3TIMES WEEKLY
  5. COTRIMOXAZOLE [Suspect]
     Active Substance: SULFAMETHOXAZOLE\TRIMETHOPRIM
     Dosage: 240 MILLIGRAM, QW
     Route: 065
  6. CYCLOSPORINE [Suspect]
     Active Substance: CYCLOSPORINE
     Indication: Lung transplant
     Dosage: 340 MILLIGRAM, QD
     Route: 065
  7. CYCLOSPORINE [Suspect]
     Active Substance: CYCLOSPORINE
     Indication: Prophylaxis against transplant rejection
  8. COLCHICINE [Suspect]
     Active Substance: COLCHICINE
     Indication: Gout
     Dosage: 1 MG, 1X/DAY
     Route: 065
     Dates: start: 20091023, end: 20091028
  9. COLCHICINE [Suspect]
     Active Substance: COLCHICINE
     Indication: Gouty arthritis
     Route: 065
  10. COLCHICINE [Suspect]
     Active Substance: COLCHICINE
     Route: 065
     Dates: start: 20091021, end: 20091022
  11. COLCHICINE [Suspect]
     Active Substance: COLCHICINE
     Dosage: 1MG BID FOR 2 AND 3RAY; 1MG/D FOR 6DAYS
     Route: 065
     Dates: start: 20091020, end: 20091020
  12. COLCHICINE [Suspect]
     Active Substance: COLCHICINE
     Dosage: 1 MG, QD
     Route: 065
     Dates: start: 20091023, end: 20091028
  13. EVEROLIMUS [Suspect]
     Active Substance: EVEROLIMUS
     Indication: Product used for unknown indication
     Dosage: 500 MG/DAY
     Route: 065
  14. EVEROLIMUS [Suspect]
     Active Substance: EVEROLIMUS
     Indication: Prophylaxis against transplant rejection
     Dosage: 1 MG/DAY
     Route: 065
  15. IRBESARTAN [Suspect]
     Active Substance: IRBESARTAN
     Indication: Coronary artery disease
     Dosage: 150 MG/DAY
     Route: 065
  16. HYDROCORTISONE [Suspect]
     Active Substance: HYDROCORTISONE
     Indication: Prophylaxis against transplant rejection
     Dosage: 20 MG/DAY
     Route: 065
  17. NICORANDIL [Suspect]
     Active Substance: NICORANDIL
     Indication: Coronary artery disease
     Dosage: 10 MG/DAY
     Route: 065
  18. PRAVASTATIN [Interacting]
     Active Substance: PRAVASTATIN
     Indication: Coronary artery disease
     Dosage: 20 MG/DAY
     Route: 065
  19. FERROUS ASCORBATE [Concomitant]
     Active Substance: FERROUS ASCORBATE
     Indication: Product used for unknown indication
     Dosage: 66 MG/DAY
  20. PANCREATIN [Concomitant]
     Active Substance: PANCRELIPASE
     Indication: Product used for unknown indication
     Dosage: 250000 IU/DAY
  21. CALCIUM [Concomitant]
     Active Substance: CALCIUM
     Indication: Product used for unknown indication
     Dosage: 1 G/DAY
  22. ALPHA-TOCOPHEROL [Concomitant]
     Active Substance: .ALPHA.-TOCOPHEROL
     Indication: Product used for unknown indication
     Dosage: 500MG DAILY
  23. ASPIRIN LYSINE [Concomitant]
     Active Substance: ASPIRIN LYSINE
     Indication: Coronary artery disease
  24. ASPIRIN LYSINE [Concomitant]
     Active Substance: ASPIRIN LYSINE
     Dosage: 75 MG/DAY
  25. COLISTIN [Concomitant]
     Active Substance: COLISTIN
     Indication: Product used for unknown indication
  26. CHOLECALCIFEROL [Concomitant]
     Active Substance: CHOLECALCIFEROL
     Indication: Product used for unknown indication
     Dosage: 880 IU/DAY

REACTIONS (16)
  - Cardiac failure [Recovered/Resolved]
  - Hepatic cytolysis [Recovered/Resolved]
  - Rhabdomyolysis [Recovered/Resolved]
  - Multiple organ dysfunction syndrome [Recovering/Resolving]
  - Pulmonary oedema [Recovered/Resolved]
  - Renal failure [Recovered/Resolved]
  - Renal failure [Recovered/Resolved]
  - Cough [Recovering/Resolving]
  - Dyspnoea [Recovering/Resolving]
  - General physical health deterioration [Unknown]
  - Haemoptysis [Recovering/Resolving]
  - Leukocytosis [Unknown]
  - Lymphopenia [Unknown]
  - Diarrhoea [Unknown]
  - Acute respiratory failure [Recovering/Resolving]
  - Left ventricular failure [Recovering/Resolving]

NARRATIVE: CASE EVENT DATE: 20090101
